FAERS Safety Report 24220116 (Version 1)
Quarter: 2024Q3

REPORT INFORMATION
  Report Type: Spontaneous
  Country: US (occurrence: US)
  Receive Date: 20240817
  Receipt Date: 20240817
  Transmission Date: 20241017
  Serious: Yes (Life-Threatening, Hospitalization, Other)
  Sender: BAXTER
  Company Number: US-BAXTER-2024BAX022848

PATIENT
  Age: 54 Year
  Sex: Female
  Weight: 63.4 kg

DRUGS (4)
  1. DOXORUBICIN [Suspect]
     Active Substance: DOXORUBICIN
     Dosage: UNK, TOTAL DOSE ADMINISTERED COURSE (DOSE): 85 MG, AS A PART OF DOSE ADJUSTED HYPERCVAD REGIMEN
     Route: 065
     Dates: start: 20240421, end: 20240421
  2. CYCLOPHOSPHAMIDE [Suspect]
     Active Substance: CYCLOPHOSPHAMIDE
     Dosage: UNK, TOTAL DOSE ADMINISTERED COURSE (DOSE): 3060 MG, AS A PART OF DOSE ADJUSTED HYPERCVAD REGIMEN
     Route: 065
     Dates: start: 20240418, end: 20240421
  3. DEXAMETHASONE [Suspect]
     Active Substance: DEXAMETHASONE
     Dosage: UNK, TOTAL DOSE ADMINISTERED THIS COURSE (COSE): 320 MG, , AS A PART OF DOSE ADJUSTED HYPERCVAD REGI
     Route: 065
     Dates: start: 20240418, end: 20240501
  4. VINCRISTINE [Suspect]
     Active Substance: VINCRISTINE
     Dosage: UNK, AS A PART OF DOSE ADJUSTED HYPERCVAD REGIMEN
     Route: 065
     Dates: start: 20240418

REACTIONS (5)
  - Leukocytosis [Unknown]
  - Myelosuppression [Recovered/Resolved]
  - White blood cell count decreased [Recovered/Resolved]
  - Platelet count decreased [Unknown]
  - Anaemia [Unknown]

NARRATIVE: CASE EVENT DATE: 20240426
